FAERS Safety Report 5116632-1 (Version None)
Quarter: 2006Q3

REPORT INFORMATION
  Report Type: 
  Country: None (occurrence: None)
  Receive Date: 20060928
  Receipt Date: 20060921
  Transmission Date: 20061208
  Serious: Yes (Life-Threatening, Hospitalization, Disabling, Other)
  Sender: FDA-Public Use
  Company Number: US-GLAXOSMITHKLINE-A0621004A

PATIENT
  Age: 78 Year
  Sex: Female

DRUGS (8)
  1. REQUIP [Suspect]
     Indication: RESTLESS LEGS SYNDROME
     Route: 048
     Dates: start: 20060913, end: 20060917
  2. TRICOR [Concomitant]
  3. LASIX [Concomitant]
  4. LIPITOR [Concomitant]
  5. GLYBURIDE AND METFORMIN HCL [Concomitant]
  6. ROSIGLITAZONE [Concomitant]
  7. ASPIRIN [Concomitant]
  8. PREMPRO [Concomitant]

REACTIONS (8)
  - ACUTE RESPIRATORY FAILURE [None]
  - CARDIAC FAILURE [None]
  - DEPRESSED LEVEL OF CONSCIOUSNESS [None]
  - HYPOXIA [None]
  - PRODUCTIVE COUGH [None]
  - PULMONARY FUNCTION TEST ABNORMAL [None]
  - PULMONARY OEDEMA [None]
  - SALIVA ALTERED [None]
